FAERS Safety Report 7249452-2 (Version None)
Quarter: 2011Q1

REPORT INFORMATION
  Report Type: 
  Country: None (occurrence: None)
  Receive Date: 20110128
  Receipt Date: 20101206
  Transmission Date: 20110831
  Serious: Yes (Hospitalization)
  Sender: FDA-Public Use
  Company Number: US-BAYER-201022433NA

PATIENT
  Sex: Female
  Weight: 95 kg

DRUGS (4)
  1. ALLERGY MEDICATION [Concomitant]
     Indication: HYPERSENSITIVITY
     Route: 055
  2. PROTONIX [Concomitant]
  3. ANTI-ASTHMATICS [Concomitant]
     Indication: ASTHMA
     Route: 055
  4. YAZ [Suspect]
     Indication: PRODUCT USED FOR UNKNOWN INDICATION
     Dosage: UNK UNK, UNK
     Route: 048
     Dates: start: 20080601, end: 20080601

REACTIONS (11)
  - DEEP VEIN THROMBOSIS [None]
  - NEURALGIC AMYOTROPHY [None]
  - HAEMATOMA [None]
  - PULMONARY EMBOLISM [None]
  - OEDEMA PERIPHERAL [None]
  - PULMONARY INFARCTION [None]
  - THROMBOPHLEBITIS [None]
  - AXILLARY MASS [None]
  - SENSATION OF HEAVINESS [None]
  - PAIN [None]
  - LIMB DISCOMFORT [None]
